FAERS Safety Report 6287850-4 (Version None)
Quarter: 2009Q3

REPORT INFORMATION
  Report Type: 
  Country: None (occurrence: None)
  Receive Date: 20090729
  Receipt Date: 20070504
  Transmission Date: 20100115
  Serious: Yes (Disabling, Other)
  Sender: FDA-Public Use
  Company Number: US-ASTRAZENECA-2006UW11660

PATIENT
  Age: 17271 Day
  Sex: Female
  Weight: 131.1 kg

DRUGS (11)
  1. SEROQUEL [Suspect]
     Indication: BIPOLAR DISORDER
     Dosage: 200 MG AT MORNING, 400 MG AT NIGHT
     Route: 048
     Dates: start: 20060301
  2. SEROQUEL [Suspect]
     Indication: DEPRESSION
     Dosage: 200 MG AT MORNING, 400 MG AT NIGHT
     Route: 048
     Dates: start: 20060301
  3. SEROQUEL [Suspect]
     Indication: TRICHOTILLOMANIA
     Dosage: 200 MG AT MORNING, 400 MG AT NIGHT
     Route: 048
     Dates: start: 20060301
  4. ABILIFY [Suspect]
     Dates: start: 20040101, end: 20060101
  5. ZYPREXA [Suspect]
     Dates: start: 20050101
  6. NEXIUM [Concomitant]
     Route: 048
  7. METFORMIN [Concomitant]
     Route: 048
  8. PROZAC [Concomitant]
     Dosage: 20 MG , 40 MG ONCE DAILY
     Route: 048
  9. AVALIDE [Concomitant]
     Route: 065
  10. BENADRYL [Concomitant]
     Route: 048
  11. AVANDIA [Concomitant]
     Route: 048

REACTIONS (2)
  - DIABETES MELLITUS [None]
  - DIABETIC COMPLICATION [None]
